FAERS Safety Report 7214385-4 (Version None)
Quarter: 2011Q1

REPORT INFORMATION
  Report Type: 
  Country: None (occurrence: None)
  Receive Date: 20110107
  Receipt Date: 20101229
  Transmission Date: 20110831
  Serious: Yes (Other)
  Sender: FDA-Public Use
  Company Number: PHHY2010AU89882

PATIENT
  Sex: Female

DRUGS (1)
  1. ACLASTA [Suspect]
     Dosage: 5 MG
     Dates: start: 20101217

REACTIONS (4)
  - ABDOMINAL PAIN UPPER [None]
  - THIRST [None]
  - ABDOMINAL RIGIDITY [None]
  - PYREXIA [None]
